FAERS Safety Report 6438408-5 (Version None)
Quarter: 2009Q4

REPORT INFORMATION
  Report Type: 
  Country: None (occurrence: None)
  Receive Date: 20091109
  Receipt Date: 20091104
  Transmission Date: 20100525
  Serious: Yes (Disabling, Other)
  Sender: FDA-Public Use
  Company Number: GB-EBEWE-1686OXALI09

PATIENT
  Age: 62 Year
  Sex: Female
  Weight: 58.7 kg

DRUGS (5)
  1. OXALIPLATIN [Suspect]
     Indication: COLORECTAL CANCER METASTATIC
     Dosage: 85 MG/M2, Q14 DAYS, IV
     Route: 042
     Dates: start: 20060314, end: 20060830
  2. CAPECITABINE [Suspect]
     Indication: COLORECTAL CANCER METASTATIC
     Dosage: 1000 MG/M2, Q14 DAYS, PO
     Route: 048
     Dates: start: 20060314, end: 20060830
  3. DEXAMETHASONE [Concomitant]
  4. DOMPERIDONE [Concomitant]
  5. ONDANSETRON [Concomitant]

REACTIONS (4)
  - OPTIC ATROPHY [None]
  - OPTIC ISCHAEMIC NEUROPATHY [None]
  - PALMAR-PLANTAR ERYTHRODYSAESTHESIA SYNDROME [None]
  - PAPILLITIS [None]
